FAERS Safety Report 4739061-9 (Version None)
Quarter: 2005Q3

REPORT INFORMATION
  Report Type: 
  Country: None (occurrence: None)
  Receive Date: 20050810
  Receipt Date: 20050411
  Transmission Date: 20060218
  Serious: Yes (Hospitalization)
  Sender: FDA-Public Use
  Company Number: JP-SP-2005-00757

PATIENT
  Age: 61 Year
  Sex: Male

DRUGS (1)
  1. BCG - IT (CONNAUGHT) [Suspect]
     Indication: BLADDER CANCER
     Route: 043
     Dates: start: 20050325, end: 20050401

REACTIONS (3)
  - BOVINE TUBERCULOSIS [None]
  - PYREXIA [None]
  - WHITE BLOOD CELL COUNT INCREASED [None]
